FAERS Safety Report 18348823 (Version 1)
Quarter: 2020Q4

REPORT INFORMATION
  Report Type: Spontaneous
  Country: US (occurrence: US)
  Receive Date: 20201005
  Receipt Date: 20201005
  Transmission Date: 20210114
  Serious: Yes (Hospitalization)
  Sender: FDA-Public Use
  Company Number: None

PATIENT
  Age: 44 Year
  Sex: Female

DRUGS (20)
  1. DULOXETINE. [Concomitant]
     Active Substance: DULOXETINE
  2. LEVOTHYROXIN [Concomitant]
     Active Substance: LEVOTHYROXINE
  3. LINZESS [Concomitant]
     Active Substance: LINACLOTIDE
  4. ENBREL [Suspect]
     Active Substance: ETANERCEPT
     Indication: RHEUMATOID ARTHRITIS
     Dosage: ?          OTHER DOSE:1 CART;OTHER FREQUENCY:Q7D;?
     Route: 058
     Dates: start: 20200714
  5. ME/NAPHOS/MB HYO [Concomitant]
  6. NORTRIPTYLIN [Concomitant]
     Active Substance: NORTRIPTYLINE
  7. PRAMIPEXOLE. [Concomitant]
     Active Substance: PRAMIPEXOLE
  8. CEPHALEXIN. [Concomitant]
     Active Substance: CEPHALEXIN
  9. ESOMEPRA MAG [Concomitant]
  10. GABAPENTIN. [Concomitant]
     Active Substance: GABAPENTIN
  11. KETOROLAC [Concomitant]
     Active Substance: KETOROLAC TROMETHAMINE
  12. NAPROXEN. [Concomitant]
     Active Substance: NAPROXEN
  13. OXYCODONE [Concomitant]
     Active Substance: OXYCODONE
  14. SOD FLUORIDE PST [Concomitant]
  15. PREDNISONE. [Concomitant]
     Active Substance: PREDNISONE
  16. DIAZEPAM. [Concomitant]
     Active Substance: DIAZEPAM
  17. DILTIAZEM ER [Concomitant]
     Active Substance: DILTIAZEM
  18. LISINOPRIL. [Concomitant]
     Active Substance: LISINOPRIL
  19. ZOLPIDEM [Concomitant]
     Active Substance: ZOLPIDEM TARTRATE
  20. FAMOTIDINE. [Concomitant]
     Active Substance: FAMOTIDINE

REACTIONS (1)
  - Hysterectomy [None]

NARRATIVE: CASE EVENT DATE: 20200827
